FAERS Safety Report 5594122-X (Version None)
Quarter: 2008Q1

REPORT INFORMATION
  Report Type: 
  Country: None (occurrence: None)
  Receive Date: 20080116
  Receipt Date: 20080108
  Transmission Date: 20080703
  Serious: Yes (Other)
  Sender: FDA-Public Use
  Company Number: FR-PFIZER INC-2008003382

PATIENT
  Sex: Female

DRUGS (3)
  1. IRINOTECAN HCL [Suspect]
     Indication: COLORECTAL CANCER METASTATIC
  2. FOLINIC ACID [Concomitant]
  3. FLUOROURACIL [Concomitant]

REACTIONS (5)
  - BLOOD PRESSURE INCREASED [None]
  - CHILLS [None]
  - ERYTHEMA [None]
  - HYPERSENSITIVITY [None]
  - TREMOR [None]
